FAERS Safety Report 21020602 (Version 1)
Quarter: 2022Q2

REPORT INFORMATION
  Report Type: Spontaneous
  Country: CA (occurrence: None)
  Receive Date: 20220629
  Receipt Date: 20220629
  Transmission Date: 20220721
  Serious: Yes (Hospitalization)
  Sender: FDA-Public Use
  Company Number: CA-ROCHE-3122343

PATIENT
  Age: 62 Year
  Sex: Male

DRUGS (5)
  1. CATHFLO ACTIVASE [Suspect]
     Active Substance: ALTEPLASE
     Indication: Thrombosis
     Route: 042
  2. CATHFLO ACTIVASE [Suspect]
     Active Substance: ALTEPLASE
     Indication: Fistula
  3. MIDAZOLAM [Concomitant]
     Active Substance: MIDAZOLAM
     Indication: Product used for unknown indication
     Dosage: DRUG DOSE FIRST ADMINISTERED IS NOT PROVIDED
     Route: 065
  4. VISIPAQUE [Concomitant]
     Active Substance: IODIXANOL
     Dosage: DRUG DOSE FIRST ADMINISTERED IS NOT PROVIDED
  5. FENTANYL [Concomitant]
     Active Substance: FENTANYL
     Dosage: DRUG DOSE FIRST ADMINISTERED IS NOT PROVIDED

REACTIONS (8)
  - Vomiting [Recovered/Resolved]
  - Hypersensitivity [Recovered/Resolved]
  - Lip swelling [Recovered/Resolved]
  - Retching [Recovered/Resolved]
  - Groin pain [Recovered/Resolved]
  - Choking sensation [Recovered/Resolved]
  - Swollen tongue [Recovered/Resolved]
  - Arthralgia [Recovered/Resolved]
